FAERS Safety Report 10198237 (Version 1)
Quarter: 2014Q2

REPORT INFORMATION
  Report Type: Spontaneous
  Country: US (occurrence: US)
  Receive Date: 20140527
  Receipt Date: 20140527
  Transmission Date: 20141212
  Serious: No
  Sender: FDA-Public Use
  Company Number: US-NOVEN-13US007598

PATIENT
  Age: 9 Year
  Sex: Male
  Weight: 26.3 kg

DRUGS (3)
  1. DAYTRANA [Suspect]
     Indication: ATTENTION DEFICIT/HYPERACTIVITY DISORDER
     Dosage: 15 MG, UNK
     Route: 062
     Dates: start: 20130826
  2. DAYTRANA [Suspect]
     Dosage: 10 MG, UNK
     Route: 062
     Dates: start: 2012, end: 20130825
  3. CLONIDINE [Concomitant]
     Indication: INSOMNIA
     Dosage: 0.1 MG, UNK
     Route: 048
     Dates: start: 2010

REACTIONS (3)
  - Drug effect delayed [Unknown]
  - Nausea [Not Recovered/Not Resolved]
  - Dizziness [Not Recovered/Not Resolved]
